FAERS Safety Report 19471940 (Version 1)
Quarter: 2021Q2

REPORT INFORMATION
  Report Type: Spontaneous
  Country: US (occurrence: US)
  Receive Date: 20210629
  Receipt Date: 20210629
  Transmission Date: 20210717
  Serious: Yes (Hospitalization)
  Sender: FDA-Public Use
  Company Number: None

PATIENT
  Sex: Male

DRUGS (33)
  1. AMLODIPINE [Concomitant]
     Active Substance: AMLODIPINE BESYLATE
  2. DOCUSATE SOD [Concomitant]
  3. WARFARIN [Concomitant]
     Active Substance: WARFARIN
  4. ESBRIET [Suspect]
     Active Substance: PIRFENIDONE
     Indication: IDIOPATHIC PULMONARY FIBROSIS
     Route: 048
     Dates: start: 20200317
  5. BEVESPI AEROSPHERE [Concomitant]
     Active Substance: FORMOTEROL FUMARATE\GLYCOPYRROLATE
  6. METAMUCIL [Concomitant]
     Active Substance: PLANTAGO SEED
  7. CLOPIDOGREL [Concomitant]
     Active Substance: CLOPIDOGREL BISULFATE
  8. GABAPENTIN. [Concomitant]
     Active Substance: GABAPENTIN
  9. NOVOLOG [Concomitant]
     Active Substance: INSULIN ASPART
  10. TRIAMCINOLON CRE [Concomitant]
  11. ATORVASTATIN [Concomitant]
     Active Substance: ATORVASTATIN
  12. VITAMIN D3 [Concomitant]
     Active Substance: CHOLECALCIFEROL
  13. FENOFIBRATE. [Concomitant]
     Active Substance: FENOFIBRATE
  14. NITROGLYCERN SUB [Concomitant]
  15. SPIRONOLACT [Concomitant]
     Active Substance: SPIRONOLACTONE
  16. AZITHROMYCIN ANHYDROUS. [Concomitant]
     Active Substance: AZITHROMYCIN ANHYDROUS
  17. BENZONATATE. [Concomitant]
     Active Substance: BENZONATATE
  18. BUMETANIDE. [Concomitant]
     Active Substance: BUMETANIDE
  19. CEPHALEXIN. [Concomitant]
     Active Substance: CEPHALEXIN
  20. METOLAZONE. [Concomitant]
     Active Substance: METOLAZONE
  21. VICTOZA [Concomitant]
     Active Substance: LIRAGLUTIDE
  22. CETIRIZINE [Concomitant]
     Active Substance: CETIRIZINE HYDROCHLORIDE
  23. PANTOPRAZOLE [Concomitant]
     Active Substance: PANTOPRAZOLE
  24. TAMSULOSIN [Concomitant]
     Active Substance: TAMSULOSIN
  25. ISOSORB MONO [Concomitant]
     Active Substance: ISOSORBIDE MONONITRATE
  26. POLYETH GLYC [Concomitant]
     Active Substance: POLYETHYLENE GLYCOLS
  27. POT CHLORIDE ER [Concomitant]
  28. SODIUM CHLOR NEB 3% [Concomitant]
  29. AMOX/K CLAV [Concomitant]
     Active Substance: AMOXICILLIN\CLAVULANATE POTASSIUM
  30. CALCITRIOL. [Concomitant]
     Active Substance: CALCITRIOL
  31. CARVEDILOL. [Concomitant]
     Active Substance: CARVEDILOL
  32. FINASTERIDE. [Concomitant]
     Active Substance: FINASTERIDE
  33. TRESIBA FLEX [Concomitant]

REACTIONS (2)
  - Sepsis [None]
  - Therapy interrupted [None]
